FAERS Safety Report 14399459 (Version 3)
Quarter: 2018Q2

REPORT INFORMATION
  Report Type: Spontaneous
  Country: US (occurrence: US)
  Receive Date: 20180117
  Receipt Date: 20180406
  Transmission Date: 20180711
  Serious: Yes (Death)
  Sender: FDA-Public Use
  Company Number: US-JNJFOC-20171121901

PATIENT
  Sex: Male

DRUGS (1)
  1. ZYTIGA [Suspect]
     Active Substance: ABIRATERONE ACETATE
     Indication: PRODUCT USED FOR UNKNOWN INDICATION
     Dosage: TAKE 1 HOUR BEFORE OR 2 HOURS AFTER MEAL
     Route: 048

REACTIONS (5)
  - Metastases to spine [Fatal]
  - Escherichia infection [Fatal]
  - Ageusia [Recovering/Resolving]
  - Pneumonia [Fatal]
  - Saliva altered [Unknown]
